FAERS Safety Report 14969243 (Version 5)
Quarter: 2020Q1

REPORT INFORMATION
  Report Type: Other
  Country: CA (occurrence: CA)
  Receive Date: 20180604
  Receipt Date: 20200327
  Transmission Date: 20200409
  Serious: Yes (Other)
  Sender: FDA-Public Use
  Company Number: CA-APOTEX-2018AP014851

PATIENT
  Sex: Female

DRUGS (12)
  1. METHYLPREDNISOLONE. [Suspect]
     Active Substance: METHYLPREDNISOLONE
     Indication: KIDNEY TRANSPLANT REJECTION
     Dosage: UNK
     Route: 065
  2. TACROLIMUS. [Suspect]
     Active Substance: TACROLIMUS
     Indication: RENAL TRANSPLANT
     Dosage: UNK
     Route: 065
  3. DACLIZUMAB [Suspect]
     Active Substance: DACLIZUMAB
     Indication: IMMUNOSUPPRESSANT DRUG THERAPY
  4. PROPYLTHIOURACIL. [Concomitant]
     Active Substance: PROPYLTHIOURACIL
     Indication: HYPERTHYROIDISM
     Dosage: UNK
     Route: 065
  5. AZATHIOPRINE. [Suspect]
     Active Substance: AZATHIOPRINE
     Indication: MICROSCOPIC POLYANGIITIS
     Dosage: UNK
     Route: 065
  6. MYCO[PHENOLATE [Suspect]
     Active Substance: MYCOPHENOLATE MOFETIL
     Indication: RENAL TRANSPLANT
     Dosage: UNK
     Route: 065
  7. METHIMAZOLE. [Concomitant]
     Active Substance: METHIMAZOLE
     Indication: TOXIC GOITRE
     Dosage: UNK
     Route: 065
  8. TACROLIMUS. [Suspect]
     Active Substance: TACROLIMUS
     Indication: IMMUNOSUPPRESSANT DRUG THERAPY
  9. GANCICLOVIR. [Concomitant]
     Active Substance: GANCICLOVIR
     Indication: PRODUCT USED FOR UNKNOWN INDICATION
     Dosage: UNK
     Route: 065
  10. METHIMAZOLE. [Concomitant]
     Active Substance: METHIMAZOLE
     Indication: ENDOCRINE OPHTHALMOPATHY
  11. MYCO[PHENOLATE [Suspect]
     Active Substance: MYCOPHENOLATE MOFETIL
     Indication: IMMUNOSUPPRESSANT DRUG THERAPY
  12. DACLIZUMAB [Suspect]
     Active Substance: DACLIZUMAB
     Indication: RENAL TRANSPLANT
     Dosage: UNK
     Route: 065

REACTIONS (7)
  - End stage renal disease [Recovering/Resolving]
  - Drug ineffective [Not Recovered/Not Resolved]
  - Kidney transplant rejection [Not Recovered/Not Resolved]
  - Intentional product use issue [Recovering/Resolving]
  - Disease progression [Recovering/Resolving]
  - Product use in unapproved indication [Not Recovered/Not Resolved]
  - Off label use [Not Recovered/Not Resolved]
